FAERS Safety Report 4356849-7 (Version None)
Quarter: 2004Q2

REPORT INFORMATION
  Report Type: 
  Country: None (occurrence: None)
  Receive Date: 20040507
  Receipt Date: 20040426
  Transmission Date: 20050107
  Serious: Yes (Hospitalization)
  Sender: FDA-Public Use
  Company Number: FR-JNJFOC-20040405481

PATIENT
  Age: 33 Year
  Sex: Male

DRUGS (6)
  1. TRAMADOL HCL [Suspect]
     Indication: DRUG USE FOR UNKNOWN INDICATION
     Dosage: 100 MG, 2 IN 1 DAY, ORAL
     Route: 048
     Dates: start: 20040211
  2. CELECTOL [Suspect]
     Indication: DRUG USE FOR UNKNOWN INDICATION
     Dosage: 200 MG, 1 IN 1 DAY, ORAL
     Route: 048
     Dates: start: 19990615
  3. PIPERILLINE (PIPERACILLIN SODIUM) [Suspect]
     Indication: DRUG USE FOR UNKNOWN INDICATION
     Dosage: 16 G, 1 IN 1 DAY, INTRAVENOUS
     Route: 042
     Dates: start: 20040301, end: 20040319
  4. CIPROFLOXACIN [Suspect]
     Indication: DRUG USE FOR UNKNOWN INDICATION
     Dosage: 750 MG, 2 IN 1 DAY, ORAL
     Route: 048
     Dates: start: 20040219, end: 20040319
  5. FUNGIZONE [Suspect]
     Indication: DRUG USE FOR UNKNOWN INDICATION
     Dosage: 1 DOSE(S), 3 IN 1 DAY, ORAL
     Route: 048
     Dates: start: 20040221
  6. ACETAMINOPHEN [Suspect]
     Indication: DRUG USE FOR UNKNOWN INDICATION
     Dosage: 500 MG, 1 IN 1 DAY, ORAL
     Route: 048
     Dates: start: 20040211

REACTIONS (7)
  - BACTERAEMIA [None]
  - DRUG INTERACTION [None]
  - ENTEROCOCCAL INFECTION [None]
  - ERYTHEMA [None]
  - PSEUDOMONAS INFECTION [None]
  - RASH PRURITIC [None]
  - WOUND INFECTION [None]
